FAERS Safety Report 6551604-1 (Version None)
Quarter: 2010Q1

REPORT INFORMATION
  Report Type: 
  Country: None (occurrence: None)
  Receive Date: 20100120
  Receipt Date: 20100105
  Transmission Date: 20100710
  Serious: Yes (Life-Threatening, Hospitalization, Disabling, Other)
  Sender: FDA-Public Use
  Company Number: POMP-1000781

PATIENT
  Age: 21 Year
  Sex: Female
  Weight: 70 kg

DRUGS (10)
  1. MYOZYME [Suspect]
     Indication: GLYCOGEN STORAGE DISEASE TYPE II
     Dosage: 20 MG/KG, Q2W, INTRAVENOUS
     Route: 042
     Dates: start: 20080301
  2. JURNISTA [Concomitant]
  3. THYRONAJOD (LEVOTHYROXINE SODIUM, POTASSIUM IODIDE) [Concomitant]
  4. CYMBALTA [Concomitant]
  5. PALLADONE [Concomitant]
  6. LAXOBERAL (SODIUM PICOSULFATE) [Concomitant]
  7. OMEP (OMEPRAZOLE) [Concomitant]
  8. MIRTAZAPINE [Concomitant]
  9. VALDOXAN [Concomitant]
  10. TARGIN [Concomitant]

REACTIONS (10)
  - APNOEA [None]
  - BLADDER DISORDER [None]
  - BLADDER SPASM [None]
  - EXTRAVASATION [None]
  - HYPERVENTILATION [None]
  - MICTURITION URGENCY [None]
  - NEUROGENIC BLADDER [None]
  - RENAL CYST [None]
  - URINARY INCONTINENCE [None]
  - URTICARIA [None]
